FAERS Safety Report 8615735-4 (Version None)
Quarter: 2012Q3

REPORT INFORMATION
  Report Type: 
  Country: None (occurrence: None)
  Receive Date: 20120823
  Receipt Date: 20120816
  Transmission Date: 20120928
  Serious: Yes (Other)
  Sender: FDA-Public Use
  Company Number: CA-ROCHE-1054299

PATIENT
  Sex: Male
  Weight: 60.836 kg

DRUGS (4)
  1. ROACTEMRA [Suspect]
     Dates: start: 20120620
  2. PREDNISONE TAB [Concomitant]
  3. TYLENOL [Concomitant]
  4. ROACTEMRA [Suspect]
     Indication: RHEUMATOID ARTHRITIS
     Route: 042
     Dates: start: 20111104

REACTIONS (6)
  - CONFUSIONAL STATE [None]
  - INFECTED BITES [None]
  - PHARYNGITIS [None]
  - RESPIRATORY TRACT CONGESTION [None]
  - EAR INFECTION FUNGAL [None]
  - BLOOD PRESSURE INCREASED [None]
